FAERS Safety Report 7363383-9 (Version None)
Quarter: 2011Q1

REPORT INFORMATION
  Report Type: 
  Country: None (occurrence: None)
  Receive Date: 20110321
  Receipt Date: 20110308
  Transmission Date: 20110831
  Serious: Yes (Hospitalization, Disabling)
  Sender: FDA-Public Use
  Company Number: US-JNJFOC-20070202006

PATIENT
  Sex: Male
  Weight: 64 kg

DRUGS (5)
  1. INFLIXIMAB [Suspect]
     Indication: CROHN'S DISEASE
     Dosage: TOTAL OF 20 DOSES
     Route: 042
  2. MERCAPTOPURINE [Concomitant]
  3. INFLIXIMAB [Suspect]
     Dosage: TOTAL OF 20 DOSES
     Route: 042
  4. INFLIXIMAB [Suspect]
     Route: 042
  5. INFLIXIMAB [Suspect]
     Indication: INFLAMMATORY BOWEL DISEASE
     Route: 042

REACTIONS (2)
  - PROCTITIS [None]
  - RECTAL HAEMORRHAGE [None]
